FAERS Safety Report 24782695 (Version 2)
Quarter: 2024Q4

REPORT INFORMATION
  Report Type: Report from Study
  Country: VN (occurrence: VN)
  Receive Date: 20241227
  Receipt Date: 20241231
  Transmission Date: 20250115
  Serious: Yes (Hospitalization, Other)
  Sender: PFIZER
  Company Number: VN-TAKEDA-2024TUS128581

PATIENT
  Sex: Male

DRUGS (1)
  1. ADCETRIS [Suspect]
     Active Substance: BRENTUXIMAB VEDOTIN
     Indication: Hodgkin^s disease refractory
     Dosage: 100 MG, EVERY 3 WEEKS
     Route: 042

REACTIONS (1)
  - Myasthenia gravis [Unknown]

NARRATIVE: CASE EVENT DATE: 20241218
